FAERS Safety Report 25204220 (Version 1)
Quarter: 2025Q2

REPORT INFORMATION
  Report Type: Spontaneous
  Country: FR (occurrence: FR)
  Receive Date: 20250416
  Receipt Date: 20250416
  Transmission Date: 20250716
  Serious: Yes (Other)
  Sender: TEVA
  Company Number: None

PATIENT
  Age: 58 Year
  Sex: Male
  Weight: 112 kg

DRUGS (2)
  1. AMOXICILLIN [Suspect]
     Active Substance: AMOXICILLIN
     Indication: Infection
     Dosage: 1 G/ 3 TIMES A DAY: 1FP
     Route: 048
     Dates: start: 20250225, end: 20250228
  2. IOMERON [Suspect]
     Active Substance: IOMEPROL
     Indication: Computerised tomogram
     Route: 042
     Dates: start: 20250226, end: 20250226

REACTIONS (1)
  - Toxic skin eruption [Recovering/Resolving]

NARRATIVE: CASE EVENT DATE: 20250228
